FAERS Safety Report 6837502-4 (Version None)
Quarter: 2010Q3

REPORT INFORMATION
  Report Type: 
  Country: None (occurrence: None)
  Receive Date: 20100713
  Receipt Date: 20070515
  Transmission Date: 20110219
  Serious: No
  Sender: FDA-Public Use
  Company Number: US-PFIZER INC-2007040030

PATIENT
  Sex: Male
  Weight: 70.909 kg

DRUGS (6)
  1. CHANTIX [Suspect]
     Indication: SMOKING CESSATION THERAPY
     Dates: start: 20070401
  2. WATER [Suspect]
     Dosage: 8 OZ BID EVERY DAY TDD:16 OZ
  3. MICARDIS [Concomitant]
  4. GLUCOPHAGE [Concomitant]
  5. XANAX [Concomitant]
  6. ZOLOFT [Concomitant]

REACTIONS (1)
  - NAUSEA [None]
